FAERS Safety Report 17693294 (Version 1)
Quarter: 2020Q2

REPORT INFORMATION
  Report Type: Other
  Country: CA (occurrence: CA)
  Receive Date: 20200422
  Receipt Date: 20200422
  Transmission Date: 20200714
  Serious: Yes (Other)
  Sender: FDA-Public Use
  Company Number: CA-APOTEX-2020AP010123

PATIENT
  Age: 69 Year
  Sex: Female

DRUGS (3)
  1. SYNTHROID [Concomitant]
     Active Substance: LEVOTHYROXINE SODIUM
     Indication: PRODUCT USED FOR UNKNOWN INDICATION
     Dosage: UNK
     Route: 065
  2. ASPIRIN                            /00002701/ [Concomitant]
     Active Substance: ASPIRIN
     Indication: PRODUCT USED FOR UNKNOWN INDICATION
     Dosage: UNK
     Route: 065
  3. AMLODIPINE [Suspect]
     Active Substance: AMLODIPINE BESYLATE
     Indication: BLOOD PRESSURE MANAGEMENT
     Dosage: 5 MG, QD
     Route: 048

REACTIONS (26)
  - Decreased interest [Recovering/Resolving]
  - Feeling abnormal [Recovering/Resolving]
  - Hypothyroidism [Recovering/Resolving]
  - Joint swelling [Recovering/Resolving]
  - Thinking abnormal [Recovering/Resolving]
  - Similar reaction on previous exposure to drug [Recovering/Resolving]
  - Hepatitis [Recovering/Resolving]
  - Gastrooesophageal reflux disease [Recovering/Resolving]
  - Hypertension [Recovering/Resolving]
  - Hyperhidrosis [Recovering/Resolving]
  - Fatigue [Recovering/Resolving]
  - Anosmia [Recovering/Resolving]
  - Abnormal dreams [Recovering/Resolving]
  - Eye pruritus [Recovering/Resolving]
  - Sleep disorder [Recovering/Resolving]
  - Respiratory disorder [Recovering/Resolving]
  - Thirst [Recovering/Resolving]
  - Chest pain [Recovering/Resolving]
  - Depression [Recovering/Resolving]
  - Nausea [Recovering/Resolving]
  - Formication [Recovering/Resolving]
  - Haemorrhoids [Recovering/Resolving]
  - Arthritis [Recovering/Resolving]
  - Mobility decreased [Recovering/Resolving]
  - Peripheral swelling [Recovering/Resolving]
  - Alopecia [Recovering/Resolving]
